FAERS Safety Report 8603903-7 (Version None)
Quarter: 2012Q3

REPORT INFORMATION
  Report Type: 
  Country: None (occurrence: None)
  Receive Date: 20120820
  Receipt Date: 20120813
  Transmission Date: 20120928
  Serious: Yes (Other)
  Sender: FDA-Public Use
  Company Number: CO-AMGEN-COLSP2012051867

PATIENT
  Age: 56 Year
  Sex: Female

DRUGS (1)
  1. ENBREL [Suspect]
     Indication: PSORIATIC ARTHROPATHY
     Dosage: 50 MG, WEEKLY
     Route: 058
     Dates: start: 20080101

REACTIONS (6)
  - LEG AMPUTATION [None]
  - PAIN [None]
  - WHEELCHAIR USER [None]
  - DRUG INEFFECTIVE [None]
  - SKIN DISCOLOURATION [None]
  - SPINAL DISORDER [None]
